FAERS Safety Report 5145969-5 (Version None)
Quarter: 2006Q4

REPORT INFORMATION
  Report Type: 
  Country: None (occurrence: None)
  Receive Date: 20061108
  Receipt Date: 20061031
  Transmission Date: 20070319
  Serious: Yes (Hospitalization)
  Sender: FDA-Public Use
  Company Number: US-BRISTOL-MYERS SQUIBB COMPANY-13561089

PATIENT
  Age: 42 Year
  Sex: Female
  Weight: 55 kg

DRUGS (18)
  1. CETUXIMAB [Suspect]
     Indication: CERVIX CARCINOMA
     Route: 042
     Dates: start: 20061005, end: 20061005
  2. CISPLATIN [Suspect]
     Indication: CERVIX CARCINOMA
     Dates: start: 20060928
  3. RADIATION THERAPY [Suspect]
     Indication: CERVIX CARCINOMA
     Dates: start: 20060928
  4. OXYCONTIN [Concomitant]
     Route: 048
  5. OXYCODONE HCL [Concomitant]
     Indication: PAIN
     Route: 048
  6. GABAPENTIN [Concomitant]
     Route: 048
  7. PROMETHAZINE [Concomitant]
     Indication: NAUSEA
     Route: 048
  8. TEMAZEPAM [Concomitant]
     Route: 048
  9. METOPROLOL TARTRATE [Concomitant]
     Route: 048
  10. GLYCERIN SUPPOSITORY [Concomitant]
     Indication: CONSTIPATION
     Route: 054
  11. SENNA [Concomitant]
     Indication: CONSTIPATION
     Route: 048
  12. FAMOTIDINE [Concomitant]
     Route: 048
  13. POLYETHYLENE GLYCOL [Concomitant]
     Indication: CONSTIPATION
     Route: 048
  14. DOXYCYCLINE [Concomitant]
     Route: 048
  15. CLINDAMYCIN [Concomitant]
     Indication: DERMATITIS ACNEIFORM
     Route: 061
  16. LORAZEPAM [Concomitant]
     Indication: NAUSEA
     Route: 048
  17. DIPHENOXYLATE HCL + ATROPINE SULFATE [Concomitant]
     Indication: DIARRHOEA
     Route: 048
  18. TRYPSIN+PERU BALSAM+CASTOR OIL [Concomitant]
     Indication: STOMATITIS
     Route: 061

REACTIONS (1)
  - ORAL INTAKE REDUCED [None]
